FAERS Safety Report 4590100-8 (Version None)
Quarter: 2005Q1

REPORT INFORMATION
  Report Type: 
  Country: None (occurrence: None)
  Receive Date: 20050217
  Receipt Date: 20050202
  Transmission Date: 20050727
  Serious: Yes (Death, Life-Threatening)
  Sender: FDA-Public Use
  Company Number: 212236

PATIENT
  Age: 79 Year
  Sex: Female

DRUGS (5)
  1. MABTHERA (RITUXIMAB) CONC FOR SOLUTION FOR INFUSION [Suspect]
     Indication: B-CELL LYMPHOMA
  2. CYCLOPHOSPHAMIDE [Suspect]
     Indication: B-CELL LYMPHOMA
  3. DOXORUBICIN (DOXORUBICIN, DOXORUBICIN HYDROCHLORIDE) [Suspect]
     Indication: B-CELL LYMPHOMA
  4. VINCRISTINE [Suspect]
     Indication: B-CELL LYMPHOMA
  5. PREDNISONE [Suspect]
     Indication: B-CELL LYMPHOMA

REACTIONS (9)
  - BRADYCARDIA [None]
  - CLOSTRIDIUM COLITIS [None]
  - DEHYDRATION [None]
  - DISEASE PROGRESSION [None]
  - HYPOTENSION [None]
  - HYPOXIA [None]
  - NEUTROPENIA [None]
  - PLEURAL EFFUSION [None]
  - PNEUMONIA [None]
